FAERS Safety Report 4695637-9 (Version None)
Quarter: 2005Q2

REPORT INFORMATION
  Report Type: 
  Country: None (occurrence: None)
  Receive Date: 20050608
  Receipt Date: 20050406
  Transmission Date: 20051028
  Serious: Yes (Death)
  Sender: FDA-Public Use
  Company Number: F03200500047

PATIENT
  Age: 70 Year
  Sex: Male

DRUGS (8)
  1. ELOXATIN [Suspect]
     Indication: NON-SMALL CELL LUNG CANCER
     Dosage: INTRAVENOUS NOS
     Route: 042
     Dates: start: 20041227, end: 20041227
  2. IRINOTECAN HCL [Suspect]
     Indication: NON-SMALL CELL LUNG CANCER
     Dosage: 50 MG/M2 1/WEEK - INTRAVENOUS NOS
     Route: 042
     Dates: start: 20041227, end: 20041227
  3. LANSOPRAZOLE [Concomitant]
  4. LEVOFLOXACIN [Concomitant]
  5. FINASTERIDE [Concomitant]
  6. METOPROLOL SUCCINATE [Concomitant]
  7. MORPHINE SULFATE [Concomitant]
  8. VICODIN [Concomitant]

REACTIONS (2)
  - DYSPNOEA [None]
  - HAEMOPTYSIS [None]
